FAERS Safety Report 11858941 (Version 1)
Quarter: 2015Q4

REPORT INFORMATION
  Report Type: Spontaneous
  Country: US (occurrence: US)
  Receive Date: 20151222
  Receipt Date: 20151222
  Transmission Date: 20160305
  Serious: Yes (Death)
  Sender: FDA-Public Use
  Company Number: US-ALVOGEN-2015-ALVOGEN-020441

PATIENT
  Age: 15 Year
  Sex: Female

DRUGS (5)
  1. MORPHINE [Suspect]
     Active Substance: MORPHINE
     Indication: SUICIDE ATTEMPT
     Route: 048
  2. TEMAZEPAM. [Suspect]
     Active Substance: TEMAZEPAM
     Indication: SUICIDE ATTEMPT
     Route: 048
  3. OXYCODONE [Suspect]
     Active Substance: OXYCODONE
     Indication: SUICIDE ATTEMPT
     Route: 048
  4. ACETAMINOPHEN/HYDROCODONE [Suspect]
     Active Substance: ACETAMINOPHEN\HYDROCODONE
     Indication: SUICIDE ATTEMPT
     Route: 048
  5. CITALOPRAM [Suspect]
     Active Substance: CITALOPRAM HYDROBROMIDE
     Indication: SUICIDE ATTEMPT
     Route: 048

REACTIONS (2)
  - Exposure via ingestion [None]
  - Completed suicide [Fatal]
